FAERS Safety Report 7854260 (Version 2)
Quarter: 2013Q3

REPORT INFORMATION
  Report Type: Report from Study
  Country: GB (occurrence: GB)
  Receive Date: 20110314
  Receipt Date: 20130812
  Transmission Date: 20140515
  Serious: Yes (Death)
  Sender: FDA-Public Use
  Company Number: GB-ROCHE-764229

PATIENT
  Sex: Female
  Weight: 156 kg

DRUGS (10)
  1. OSELTAMIVIR [Suspect]
     Indication: INFLUENZA
     Route: 042
     Dates: start: 20110125, end: 20110129
  2. OSELTAMIVIR [Suspect]
     Indication: INFLUENZA
     Route: 050
     Dates: start: 20110120, end: 20110125
  3. SALBUTAMOL [Concomitant]
     Dosage: NEBULISER
     Route: 065
     Dates: start: 20110120, end: 20110129
  4. IPRATROPIUM [Concomitant]
     Dosage: NEBULISER
     Route: 065
     Dates: start: 20110120, end: 20110129
  5. PARACETAMOL [Concomitant]
     Route: 065
     Dates: start: 20110120, end: 20110129
  6. OMEPRAZOLE [Concomitant]
     Dosage: 40 MG DAILY
     Route: 065
     Dates: start: 20110123
  7. METOCLOPRAMIDE [Concomitant]
     Route: 042
     Dates: start: 20110124
  8. HYDROCORTISONE [Concomitant]
     Route: 042
     Dates: start: 20110127
  9. HYDROCORTISONE [Concomitant]
     Route: 042
  10. CASPOFUNGIN [Concomitant]
     Dosage: 70 DAILY
     Route: 048

REACTIONS (1)
  - Multi-organ failure [Fatal]
